FAERS Safety Report 10861837 (Version 1)
Quarter: 2015Q1

REPORT INFORMATION
  Report Type: Spontaneous
  Country: GB (occurrence: GB)
  Receive Date: 20150224
  Receipt Date: 20150224
  Transmission Date: 20150721
  Serious: Yes (Other)
  Sender: FDA-Public Use
  Company Number: GB-SA-2015SA010464

PATIENT
  Age: 73 Year
  Sex: Female

DRUGS (4)
  1. FEXOFENADINE [Suspect]
     Active Substance: FEXOFENADINE\FEXOFENADINE HYDROCHLORIDE
     Indication: SINUSITIS
     Dosage: TAKEN FROM: 8 YEARS?FREQUENCY: AT NIGHT
     Route: 048
  2. LEVOTHYROXINE [Concomitant]
     Active Substance: LEVOTHYROXINE
     Indication: HYPOTHYROIDISM
     Dosage: SINCE 2006
     Route: 048
     Dates: start: 2006
  3. QUININE SULPHATE [Concomitant]
     Active Substance: QUININE SULFATE
     Indication: MUSCLE SPASMS
     Dosage: SINCE OCT-2014?DOSE:1 AT NIGHT
     Route: 048
     Dates: start: 201410
  4. LIOTHYRONINE [Concomitant]
     Active Substance: LIOTHYRONINE
     Indication: HYPOTHYROIDISM
     Dosage: SINCE 2006
     Route: 048
     Dates: start: 2006

REACTIONS (6)
  - Middle insomnia [Unknown]
  - Memory impairment [Unknown]
  - Condition aggravated [Unknown]
  - Initial insomnia [Unknown]
  - Feeling abnormal [Unknown]
  - Depressed level of consciousness [Unknown]

NARRATIVE: CASE EVENT DATE: 20150213
